FAERS Safety Report 10154826 (Version 1)
Quarter: 2014Q2

REPORT INFORMATION
  Report Type: Spontaneous
  Country: US (occurrence: None)
  Receive Date: 20140505
  Receipt Date: 20140505
  Transmission Date: 20141212
  Serious: No
  Sender: FDA-Public Use
  Company Number: None

PATIENT
  Age: 24 Year
  Sex: Female
  Weight: 69.85 kg

DRUGS (1)
  1. MIRENA [Suspect]

REACTIONS (4)
  - Arthritis [None]
  - Arthralgia [None]
  - Pain in extremity [None]
  - Arthropathy [None]
